FAERS Safety Report 10330700 (Version 2)
Quarter: 2014Q3

REPORT INFORMATION
  Report Type: Report from Study
  Country: MX (occurrence: MX)
  Receive Date: 20140722
  Receipt Date: 20140722
  Transmission Date: 20150326
  Serious: Yes (Hospitalization, Other)
  Sender: FDA-Public Use
  Company Number: PHHY2013MX014501

PATIENT
  Age: 71 Year
  Sex: Female

DRUGS (4)
  1. CO-DIOVAN [Suspect]
     Active Substance: HYDROCHLOROTHIAZIDE\VALSARTAN
     Indication: BLOOD PRESSURE
     Dosage: 2 DF(160/12.5 MG), DAILY
     Route: 048
     Dates: start: 20121113, end: 201312
  2. ELEQUINE [Concomitant]
     Active Substance: LEVOFLOXACIN
     Dosage: 1 DF, DAILY
     Dates: start: 201201
  3. ARTRIDOL                           /05513001/ [Concomitant]
     Dosage: UNK, QD
  4. RANISEN [Concomitant]
     Dosage: 1 DF, EVERY 12 HOURS
     Dates: start: 201201

REACTIONS (10)
  - Ear infection [Recovered/Resolved]
  - Bronchitis [Recovered/Resolved]
  - Apathy [Recovered/Resolved]
  - Drug intolerance [Recovered/Resolved]
  - Pyrexia [Recovered/Resolved]
  - Nasopharyngitis [Recovered/Resolved]
  - Pharyngitis [Recovered/Resolved]
  - Depression [Recovered/Resolved]
  - Decreased appetite [Recovered/Resolved]
  - Rhinitis [Recovered/Resolved]

NARRATIVE: CASE EVENT DATE: 201212
